FAERS Safety Report 25491578 (Version 1)
Quarter: 2025Q2

REPORT INFORMATION
  Report Type: Report from Study
  Country: US (occurrence: US)
  Receive Date: 20250629
  Receipt Date: 20250629
  Transmission Date: 20250717
  Serious: Yes (Other)
  Sender: ABBVIE
  Company Number: US-ABBVIE-6343676

PATIENT
  Age: 74 Year
  Sex: Female

DRUGS (1)
  1. HUMIRA [Suspect]
     Active Substance: ADALIMUMAB
     Indication: Psoriatic arthropathy
     Route: 058
     Dates: start: 20220810

REACTIONS (6)
  - Seizure [Unknown]
  - Fall [Recovering/Resolving]
  - Swelling face [Unknown]
  - Fat tissue increased [Unknown]
  - Eye contusion [Unknown]
  - Stress [Unknown]

NARRATIVE: CASE EVENT DATE: 20250601
